FAERS Safety Report 21622484 (Version 1)
Quarter: 2022Q4

REPORT INFORMATION
  Report Type: Spontaneous
  Country: US (occurrence: None)
  Receive Date: 20221119
  Receipt Date: 20221119
  Transmission Date: 20230113
  Serious: Yes (Disabling)
  Sender: FDA-Public Use
  Company Number: None

PATIENT
  Age: 44 Year
  Sex: Female
  Weight: 45 kg

DRUGS (7)
  1. LEVOFLOXACIN [Suspect]
     Active Substance: LEVOFLOXACIN
     Indication: Cough
     Dates: start: 20221110, end: 20221116
  2. LEVOFLOXACIN [Suspect]
     Active Substance: LEVOFLOXACIN
     Indication: Productive cough
  3. LEVOFLOXACIN [Suspect]
     Active Substance: LEVOFLOXACIN
     Indication: Nasopharyngitis
  4. VITAMIN D [Concomitant]
     Active Substance: VITAMIN D NOS
  5. C [Concomitant]
  6. PROTONIX [Concomitant]
     Active Substance: PANTOPRAZOLE SODIUM
  7. PEPCID [Concomitant]
     Active Substance: FAMOTIDINE

REACTIONS (18)
  - Tendon pain [None]
  - Small fibre neuropathy [None]
  - Antinuclear antibody positive [None]
  - Autoimmune thyroiditis [None]
  - Migraine [None]
  - Pyrexia [None]
  - Fatigue [None]
  - Anxiety [None]
  - Dyspepsia [None]
  - Arthralgia [None]
  - Neuralgia [None]
  - Anaemia [None]
  - Vitamin D deficiency [None]
  - Myalgia [None]
  - COVID-19 [None]
  - Headache [None]
  - Arthralgia [None]
  - Frustration tolerance decreased [None]

NARRATIVE: CASE EVENT DATE: 20221118
